FAERS Safety Report 6677203-9 (Version None)
Quarter: 2010Q2

REPORT INFORMATION
  Report Type: 
  Country: None (occurrence: None)
  Receive Date: 20100402
  Receipt Date: 20090818
  Transmission Date: 20101027
  Serious: No
  Sender: FDA-Public Use
  Company Number: 2009-00478

PATIENT
  Sex: Male

DRUGS (1)
  1. ZICAM NASAL PRODUCTS [Suspect]
     Dosage: APPROXIMATELY 4 MOS AGO

REACTIONS (3)
  - ANOSMIA [None]
  - DECREASED APPETITE [None]
  - WEIGHT DECREASED [None]
